FAERS Safety Report 5141425-9 (Version None)
Quarter: 2006Q4

REPORT INFORMATION
  Report Type: 
  Country: None (occurrence: None)
  Receive Date: 20061101
  Receipt Date: 20061027
  Transmission Date: 20070319
  Serious: Yes (Hospitalization)
  Sender: FDA-Public Use
  Company Number: CN-BRISTOL-MYERS SQUIBB COMPANY-13560479

PATIENT
  Age: 9 Year
  Sex: Female

DRUGS (1)
  1. VELOSEF [Suspect]
     Indication: RHINITIS
     Route: 042
     Dates: start: 20061012, end: 20061013

REACTIONS (1)
  - HAEMATURIA [None]
